FAERS Safety Report 7536177-9 (Version None)
Quarter: 2011Q2

REPORT INFORMATION
  Report Type: 
  Country: None (occurrence: None)
  Receive Date: 20110609
  Receipt Date: 20110606
  Transmission Date: 20111010
  Serious: Yes (Other)
  Sender: FDA-Public Use
  Company Number: FR-ALLERGAN-1107088US

PATIENT
  Age: 42 Year
  Sex: Male

DRUGS (3)
  1. VITAMIN A [Concomitant]
     Indication: PRODUCT USED FOR UNKNOWN INDICATION
  2. OZURDEX [Suspect]
     Indication: PRODUCT USED FOR UNKNOWN INDICATION
     Dosage: UNK
     Dates: start: 20110523, end: 20110523
  3. AZYTAR [Concomitant]
     Indication: PROPHYLAXIS

REACTIONS (3)
  - CONJUNCTIVAL OEDEMA [None]
  - OCULAR HYPERAEMIA [None]
  - CONJUNCTIVAL HAEMORRHAGE [None]
